FAERS Safety Report 9098956 (Version 1)
Quarter: 2013Q1

REPORT INFORMATION
  Report Type: Spontaneous
  Country: US (occurrence: US)
  Receive Date: 20130214
  Receipt Date: 20130214
  Transmission Date: 20140127
  Serious: Yes (Hospitalization)
  Sender: FDA-Public Use
  Company Number: US-GILEAD-2013-0069760

PATIENT
  Age: 83 Year
  Sex: Female

DRUGS (11)
  1. RANEXA [Suspect]
     Indication: MYOCARDIAL ISCHAEMIA
     Dosage: 1000 MG, BID
     Route: 048
  2. RANEXA [Suspect]
     Dosage: 500 MG, BID
     Route: 048
  3. COREG [Concomitant]
  4. AMIODARONE [Concomitant]
  5. LASIX                              /00032601/ [Concomitant]
  6. SIMVASTATIN [Concomitant]
  7. XALATAN [Concomitant]
  8. FERROUS SULFATE [Concomitant]
  9. VITAMIN C                          /00008001/ [Concomitant]
  10. CALTRATE                           /00944201/ [Concomitant]
  11. IMDUR [Concomitant]

REACTIONS (1)
  - Psychotic disorder [Unknown]
